FAERS Safety Report 13928872 (Version 1)
Quarter: 2017Q3

REPORT INFORMATION
  Report Type: Spontaneous
  Country: US (occurrence: None)
  Receive Date: 20170901
  Receipt Date: 20170901
  Transmission Date: 20171127
  Serious: Yes (Hospitalization)
  Sender: FDA-Public Use
  Company Number: None

PATIENT
  Age: 63 Year
  Sex: Female

DRUGS (14)
  1. SENNACON [Concomitant]
  2. PLAVIX [Concomitant]
     Active Substance: CLOPIDOGREL BISULFATE
  3. LANTUS [Concomitant]
     Active Substance: INSULIN GLARGINE
  4. AMLODIPINE [Concomitant]
     Active Substance: AMLODIPINE BESYLATE
  5. FUROSEMIDE. [Concomitant]
     Active Substance: FUROSEMIDE
  6. CARVEDILOL. [Concomitant]
     Active Substance: CARVEDILOL
  7. HUMALOG [Concomitant]
     Active Substance: INSULIN LISPRO
  8. HYDROCHLOROT [Concomitant]
     Active Substance: HYDROCHLOROTHIAZIDE
  9. METFORMIN [Concomitant]
     Active Substance: METFORMIN HYDROCHLORIDE
  10. ATORVASTATIN [Concomitant]
     Active Substance: ATORVASTATIN
  11. IBRANCE [Suspect]
     Active Substance: PALBOCICLIB
     Indication: BREAST CANCER
     Dosage: 125 MG QD1-21 OF 28D CYCLE ORAL
     Route: 048
     Dates: start: 201702
  12. LETROZOLE. [Concomitant]
     Active Substance: LETROZOLE
  13. WARFARIN [Concomitant]
     Active Substance: WARFARIN
  14. LISINOPRIL. [Concomitant]
     Active Substance: LISINOPRIL

REACTIONS (1)
  - Pneumonia [None]

NARRATIVE: CASE EVENT DATE: 201707
